FAERS Safety Report 8537296-0 (Version None)
Quarter: 2012Q3

REPORT INFORMATION
  Report Type: 
  Country: None (occurrence: None)
  Receive Date: 20120725
  Receipt Date: 20120717
  Transmission Date: 20120928
  Serious: Yes (Other)
  Sender: FDA-Public Use
  Company Number: US-JNJFOC-20120709470

PATIENT
  Sex: Male
  Weight: 92.53 kg

DRUGS (17)
  1. XARELTO [Suspect]
     Route: 048
     Dates: start: 20120601, end: 20120701
  2. METFORMIN HYDROCHLORIDE [Concomitant]
     Route: 048
     Dates: end: 20120716
  3. NITROGLYCERIN [Concomitant]
     Indication: ANGINA PECTORIS
  4. XARELTO [Suspect]
     Route: 048
     Dates: start: 20120601, end: 20120701
  5. XARELTO [Suspect]
     Indication: ATRIAL FIBRILLATION
     Route: 048
     Dates: start: 20120717
  6. XARELTO [Suspect]
     Route: 048
     Dates: start: 20120601, end: 20120701
  7. CRESTOR [Concomitant]
     Indication: BLOOD CHOLESTEROL
     Dates: end: 20120716
  8. LISINOPRIL [Concomitant]
     Route: 048
  9. XARELTO [Suspect]
     Indication: DEEP VEIN THROMBOSIS
     Route: 048
     Dates: start: 20120717
  10. PRADAXA [Suspect]
     Indication: ATRIAL FIBRILLATION
     Route: 048
     Dates: start: 20110701, end: 20120716
  11. ALLOPURINOL [Concomitant]
     Route: 048
  12. PRILOSEC [Concomitant]
  13. PRADAXA [Suspect]
     Indication: DEEP VEIN THROMBOSIS
     Route: 048
     Dates: start: 20110701, end: 20120716
  14. SOTALOL HYDROCHLORIDE [Concomitant]
     Indication: ATRIAL FIBRILLATION
     Route: 048
  15. METFORMIN HYDROCHLORIDE [Concomitant]
     Indication: TYPE 2 DIABETES MELLITUS
     Route: 048
  16. XARELTO [Suspect]
     Indication: CEREBROVASCULAR ACCIDENT PROPHYLAXIS
     Route: 048
     Dates: start: 20120717
  17. FISH OIL [Concomitant]
     Route: 048

REACTIONS (3)
  - ANGINA PECTORIS [None]
  - FLATULENCE [None]
  - INAPPROPRIATE SCHEDULE OF DRUG ADMINISTRATION [None]
